FAERS Safety Report 6696126-2 (Version None)
Quarter: 2010Q2

REPORT INFORMATION
  Report Type: 
  Country: None (occurrence: None)
  Receive Date: 20100426
  Receipt Date: 20100416
  Transmission Date: 20101027
  Serious: Yes (Other)
  Sender: FDA-Public Use
  Company Number: US-AMGEN-QUU406664

PATIENT
  Sex: Male

DRUGS (1)
  1. ENBREL [Suspect]
     Indication: JUVENILE ARTHRITIS
     Route: 058
     Dates: start: 20091217

REACTIONS (6)
  - CHILLS [None]
  - DECREASED APPETITE [None]
  - INJECTION SITE URTICARIA [None]
  - MIGRAINE [None]
  - NAUSEA [None]
  - VISUAL IMPAIRMENT [None]
